FAERS Safety Report 23042461 (Version 1)
Quarter: 2023Q4

REPORT INFORMATION
  Report Type: Spontaneous
  Country: US (occurrence: US)
  Receive Date: 20231008
  Receipt Date: 20231008
  Transmission Date: 20240110
  Serious: Yes (Other)
  Sender: FDA-Public Use
  Company Number: US-BAUSCHBL-2023BNL009361

PATIENT
  Age: 71 Year
  Sex: Female

DRUGS (3)
  1. ALREX [Suspect]
     Active Substance: LOTEPREDNOL ETABONATE
     Indication: Iridocyclitis
     Dosage: (1-4 TIMES PER DAY DEPENDING ON SYMPTOMS), USING FOR ABOUT 5 YEARS
     Route: 047
  2. ALREX [Suspect]
     Active Substance: LOTEPREDNOL ETABONATE
     Indication: Corneal opacity
  3. ALREX [Suspect]
     Active Substance: LOTEPREDNOL ETABONATE
     Indication: Product used for unknown indication

REACTIONS (8)
  - Disease progression [Unknown]
  - Iridocyclitis [Unknown]
  - Corneal opacity [Unknown]
  - Ophthalmic herpes zoster [Unknown]
  - Visual impairment [Unknown]
  - Loss of personal independence in daily activities [Unknown]
  - Product use in unapproved indication [Unknown]
  - Product quality issue [Unknown]

NARRATIVE: CASE EVENT DATE: 20230901
